FAERS Safety Report 12671560 (Version 1)
Quarter: 2016Q3

REPORT INFORMATION
  Report Type: Spontaneous
  Country: FR (occurrence: FR)
  Receive Date: 20160822
  Receipt Date: 20160822
  Transmission Date: 20161109
  Serious: Yes (Other)
  Sender: FDA-Public Use
  Company Number: FR-BAYER-2016-155635

PATIENT
  Age: 26 Year
  Sex: Female

DRUGS (1)
  1. NEXAVAR [Suspect]
     Active Substance: SORAFENIB
     Indication: HEPATOCELLULAR CARCINOMA
     Dosage: 200 MG, BID
     Route: 048
     Dates: start: 20160611, end: 20160620

REACTIONS (3)
  - Urticaria [Recovering/Resolving]
  - Arthralgia [None]
  - Eosinophilia [None]

NARRATIVE: CASE EVENT DATE: 20160618
